FAERS Safety Report 23110478 (Version 2)
Quarter: 2024Q1

REPORT INFORMATION
  Report Type: Spontaneous
  Country: AU (occurrence: AU)
  Receive Date: 20231026
  Receipt Date: 20240221
  Transmission Date: 20240410
  Serious: Yes (Death)
  Sender: FDA-Public Use
  Company Number: AU-MYLANLABS-2023M1113160

PATIENT
  Age: 84 Year
  Sex: Male

DRUGS (1)
  1. CLOZARIL [Suspect]
     Active Substance: CLOZAPINE
     Indication: Schizophrenia
     Dosage: 50 MILLIGRAM
     Route: 048
     Dates: start: 20220128

REACTIONS (1)
  - Death [Fatal]

NARRATIVE: CASE EVENT DATE: 20230926
